FAERS Safety Report 19754501 (Version 3)
Quarter: 2021Q4

REPORT INFORMATION
  Report Type: Spontaneous
  Country: FR (occurrence: FR)
  Receive Date: 20210827
  Receipt Date: 20211014
  Transmission Date: 20220303
  Serious: Yes (Death, Other)
  Sender: FDA-Public Use
  Company Number: FR-ASTELLAS-2021US031916

PATIENT
  Age: 79 Year
  Sex: Male

DRUGS (1)
  1. XOSPATA [Suspect]
     Active Substance: GILTERITINIB
     Indication: Acute myeloid leukaemia
     Dosage: 3 DF, ONCE DAILY IN ONE SINGLE INTAKE
     Route: 065
     Dates: start: 20200416, end: 2021

REACTIONS (2)
  - Acute myeloid leukaemia [Fatal]
  - Therapy partial responder [Unknown]

NARRATIVE: CASE EVENT DATE: 20210101
